FAERS Safety Report 9574513 (Version 2)
Quarter: 2013Q4

REPORT INFORMATION
  Report Type: Spontaneous
  Country: US (occurrence: US)
  Receive Date: 20131001
  Receipt Date: 20131001
  Transmission Date: 20140711
  Serious: No
  Sender: FDA-Public Use
  Company Number: US-PURDUE-USA-2012-0083677

PATIENT
  Age: 82 Year
  Sex: Female
  Weight: 83.9 kg

DRUGS (3)
  1. BUTRANS [Suspect]
     Indication: BACK PAIN
     Dosage: 5 MCG/HR, WEEKLY
     Route: 062
     Dates: start: 20120109
  2. BUTRANS [Suspect]
     Dosage: 10 MCG/HR, WEEKLY
     Route: 062
     Dates: start: 20120109
  3. NORCO [Concomitant]
     Indication: BACK PAIN
     Dosage: 10 MG, 4-5 TIMES DAILY
     Route: 048

REACTIONS (9)
  - Aspartate aminotransferase increased [Not Recovered/Not Resolved]
  - Alanine aminotransferase increased [Not Recovered/Not Resolved]
  - Drug effect decreased [Not Recovered/Not Resolved]
  - Drug ineffective [Not Recovered/Not Resolved]
  - Wrong technique in drug usage process [Unknown]
  - Insomnia [Recovered/Resolved]
  - Vision blurred [Not Recovered/Not Resolved]
  - Musculoskeletal stiffness [Recovered/Resolved]
  - Neck pain [Recovered/Resolved]
